FAERS Safety Report 5502368-1 (Version None)
Quarter: 2007Q4

REPORT INFORMATION
  Report Type: 
  Country: None (occurrence: None)
  Receive Date: 20071030
  Receipt Date: 20071025
  Transmission Date: 20080405
  Serious: Yes (Death, Hospitalization)
  Sender: FDA-Public Use
  Company Number: MY-ABBOTT-07P-101-0418503-00

PATIENT
  Age: 40 Year
  Sex: Female

DRUGS (2)
  1. EPILIM [Suspect]
     Indication: EPILEPSY
     Route: 048
     Dates: start: 20061004, end: 20061212
  2. PHENYTOIN [Suspect]
     Indication: EPILEPSY
     Route: 048
     Dates: start: 20061004, end: 20061212

REACTIONS (7)
  - DEHYDRATION [None]
  - DIARRHOEA [None]
  - ECCHYMOSIS [None]
  - GASTROENTERITIS [None]
  - HYPOTENSION [None]
  - ORAL INTAKE REDUCED [None]
  - THROMBOCYTOPENIA [None]
